FAERS Safety Report 7375253-0 (Version None)
Quarter: 2011Q1

REPORT INFORMATION
  Report Type: 
  Country: None (occurrence: None)
  Receive Date: 20110325
  Receipt Date: 20110322
  Transmission Date: 20110831
  Serious: Yes (Other)
  Sender: FDA-Public Use
  Company Number: US-PFIZER INC-2011039043

PATIENT
  Sex: Female
  Weight: 81.633 kg

DRUGS (9)
  1. CHANTIX [Suspect]
     Indication: SMOKING CESSATION THERAPY
     Dosage: 1 MG, 2X/DAY
     Route: 048
     Dates: start: 20110120, end: 20110201
  2. KLONOPIN [Concomitant]
     Dosage: UNK
  3. TRIAMTERENE [Concomitant]
     Dosage: UNK
  4. CHANTIX [Suspect]
     Dosage: 1 MG, 2X/DAY
     Route: 048
     Dates: start: 20110201, end: 20110221
  5. PEPCID [Concomitant]
     Dosage: UNK
  6. ZOLOFT [Concomitant]
     Indication: DEPRESSION
     Dosage: UNK
  7. PRAVASTATIN [Concomitant]
     Indication: BLOOD CHOLESTEROL INCREASED
     Dosage: UNK
  8. ADDERALL 10 [Concomitant]
     Indication: DEPRESSION
     Dosage: UNK
  9. CHANTIX [Suspect]
     Dosage: 0.5 MG, 1X/DAY
     Route: 048
     Dates: start: 20110206, end: 20110201

REACTIONS (6)
  - DEPRESSION [None]
  - PRURITUS [None]
  - SKIN EXFOLIATION [None]
  - AGGRESSION [None]
  - MOOD SWINGS [None]
  - BLISTER [None]
